FAERS Safety Report 7050105-4 (Version None)
Quarter: 2010Q4

REPORT INFORMATION
  Report Type: 
  Country: None (occurrence: None)
  Receive Date: 20101018
  Receipt Date: 20101014
  Transmission Date: 20110411
  Serious: Yes (Hospitalization)
  Sender: FDA-Public Use
  Company Number: US-BRISTOL-MYERS SQUIBB COMPANY-15335193

PATIENT
  Age: 66 Year
  Sex: Male
  Weight: 82 kg

DRUGS (3)
  1. CISPLATIN [Suspect]
     Indication: OESOPHAGEAL ADENOCARCINOMA
     Dosage: LAST DOSE:28SEP10 TOTAL DOSE:294MG TOTAL NO OF COURSES:6 25MG/M2 DAY 1,8,15,22,29 AND 36
     Dates: start: 20100824, end: 20100928
  2. TAXOL [Suspect]
     Indication: OESOPHAGEAL ADENOCARCINOMA
     Dosage: LAST DOSE:28SEP10 TOTAL DOSE:594MG TOTAL NO OF COURSES:6 50MG/M2 DAY 1,8,15,22,,29, AND 36
     Dates: start: 20100824, end: 20100928
  3. RADIATION THERAPY [Suspect]
     Indication: OESOPHAGEAL ADENOCARCINOMA
     Dosage: 1DF=54.32GY.LASTDOSE:01OCT10;50.4GY,AT180CGY/FX DAY 1:5,8:12,15:19,22:26,29:33,36:38.FR:28.DAYS:38
     Dates: start: 20100824, end: 20101001

REACTIONS (5)
  - DIARRHOEA [None]
  - DYSPHAGIA [None]
  - NAUSEA [None]
  - OESOPHAGEAL PAIN [None]
  - VOMITING [None]
